FAERS Safety Report 5649341-0 (Version None)
Quarter: 2008Q1

REPORT INFORMATION
  Report Type: 
  Country: None (occurrence: None)
  Receive Date: 20080304
  Receipt Date: 20080121
  Transmission Date: 20080703
  Serious: No
  Sender: FDA-Public Use
  Company Number: US-BAYER-200812180NA

PATIENT
  Age: 42 Year
  Sex: Female
  Weight: 100 kg

DRUGS (1)
  1. ULTRAVIST PHARMACY BUK PACKAGE [Suspect]
     Indication: COMPUTERISED TOMOGRAM
     Dosage: TOTAL DAILY DOSE: 80 ML
     Route: 042
     Dates: start: 20080121, end: 20080121

REACTIONS (3)
  - EYE IRRITATION [None]
  - NASAL CONGESTION [None]
  - SNEEZING [None]
